FAERS Safety Report 16928458 (Version 1)
Quarter: 2019Q4

REPORT INFORMATION
  Report Type: Report from Study
  Country: None (occurrence: IT)
  Receive Date: 20191017
  Receipt Date: 20191017
  Transmission Date: 20200122
  Serious: Yes (Other)
  Sender: FDA-Public Use
  Company Number: IT-ABBVIE-19K-083-2956695-00

PATIENT
  Age: 61 Year
  Sex: Female

DRUGS (1)
  1. DUODOPA [Suspect]
     Active Substance: CARBIDOPA\LEVODOPA
     Indication: PARKINSON^S DISEASE
     Dosage: MD 11(+3)?CR 6,5?ED 4
     Route: 050
     Dates: start: 20130312

REACTIONS (2)
  - Abdominal pain [Recovered/Resolved]
  - Abnormal faeces [Unknown]

NARRATIVE: CASE EVENT DATE: 201910
